FAERS Safety Report 5530522-1 (Version None)
Quarter: 2007Q4

REPORT INFORMATION
  Report Type: 
  Country: None (occurrence: None)
  Receive Date: 20071130
  Receipt Date: 20071123
  Transmission Date: 20080405
  Serious: Yes (Other)
  Sender: FDA-Public Use
  Company Number: GB-AVENTIS-200720814GDDC

PATIENT
  Age: 7 Year
  Sex: Female

DRUGS (2)
  1. MINIRIN [Suspect]
     Route: 060
     Dates: start: 20061201, end: 20070201
  2. OXYBUTYNIN CHLORIDE [Concomitant]
     Route: 048
     Dates: start: 20060101, end: 20070401

REACTIONS (1)
  - HALLUCINATION, AUDITORY [None]
